FAERS Safety Report 7461842-1 (Version None)
Quarter: 2011Q2

REPORT INFORMATION
  Report Type: 
  Country: None (occurrence: None)
  Receive Date: 20110506
  Receipt Date: 20110503
  Transmission Date: 20111010
  Serious: Yes (Other)
  Sender: FDA-Public Use
  Company Number: US-PFIZER INC-2011039607

PATIENT
  Sex: Male

DRUGS (6)
  1. TRAMADOL [Concomitant]
     Indication: PAIN
     Dosage: UNK
     Dates: start: 20080101, end: 20100101
  2. AZITHROMYCIN [Concomitant]
     Indication: ANTIBIOTIC THERAPY
     Dosage: UNK
     Dates: start: 20080101, end: 20100101
  3. CHANTIX [Suspect]
     Indication: SMOKING CESSATION THERAPY
     Dosage: STARTER PACK 0.5 MG AND MONTHLY CONTINUING PACK 1 MG
     Route: 048
     Dates: start: 20090601, end: 20090901
  4. OMEPRAZOLE [Concomitant]
     Indication: GASTROOESOPHAGEAL REFLUX DISEASE
     Dosage: UNK
     Dates: start: 20080101
  5. ALPRAZOLAM [Concomitant]
     Indication: ANXIETY
  6. ALPRAZOLAM [Concomitant]
     Indication: DEPRESSION
     Dosage: UNK
     Dates: start: 20080101

REACTIONS (3)
  - DEPRESSION [None]
  - ANXIETY [None]
  - ANGER [None]
